FAERS Safety Report 5205819-5 (Version None)
Quarter: 2007Q1

REPORT INFORMATION
  Report Type: 
  Country: None (occurrence: None)
  Receive Date: 20070105
  Receipt Date: 20070105
  Transmission Date: 20070707
  Serious: Yes (Hospitalization)
  Sender: FDA-Public Use
  Company Number: None

PATIENT
  Age: 72 Year
  Sex: Male
  Weight: 53.3 kg

DRUGS (1)
  1. TYLENOL W/ CODEINE [Suspect]
     Indication: PAIN
     Dosage: 1 TAB  Q6H

REACTIONS (8)
  - AGITATION [None]
  - BRADYCARDIA [None]
  - BRAIN NATRIURETIC PEPTIDE INCREASED [None]
  - CARDIOMEGALY [None]
  - LEUKOCYTOSIS [None]
  - MENTAL STATUS CHANGES [None]
  - TOXICOLOGIC TEST ABNORMAL [None]
  - URINARY INCONTINENCE [None]
